FAERS Safety Report 18323373 (Version 1)
Quarter: 2020Q3

REPORT INFORMATION
  Report Type: Spontaneous
  Country: US (occurrence: US)
  Receive Date: 20200929
  Receipt Date: 20200929
  Transmission Date: 20201103
  Serious: Yes (Other)
  Sender: FDA-Public Use
  Company Number: US-STRIDES ARCOLAB LIMITED-2020SP011632

PATIENT
  Age: 74 Year
  Sex: Male
  Weight: 70.3 kg

DRUGS (2)
  1. NITETHRU (MELATONIN) [Suspect]
     Active Substance: MELATONIN
     Indication: INITIAL INSOMNIA
     Dosage: UNK, ONE CAPSULE PER DAY
     Route: 048
     Dates: start: 20200913, end: 20200918
  2. HONEY [Concomitant]
     Active Substance: HONEY
     Indication: ASTHMA
     Dosage: UNK
     Route: 065

REACTIONS (8)
  - Product dose omission issue [Unknown]
  - Anxiety [Recovered/Resolved]
  - Encephalitis [Unknown]
  - Somnolence [Recovered/Resolved]
  - Condition aggravated [Unknown]
  - Headache [Recovered/Resolved]
  - Malaise [Recovered/Resolved]
  - Dizziness [Recovered/Resolved]

NARRATIVE: CASE EVENT DATE: 20200914
